FAERS Safety Report 10593806 (Version 2)
Quarter: 2014Q4

REPORT INFORMATION
  Report Type: Spontaneous
  Country: US (occurrence: US)
  Receive Date: 20141119
  Receipt Date: 20141125
  Transmission Date: 20150529
  Serious: Yes (Hospitalization, Other)
  Sender: FDA-Public Use
  Company Number: US-ABBVIE-14K-163-1308847-00

PATIENT
  Sex: Female
  Weight: 68.55 kg

DRUGS (2)
  1. HUMIRA [Suspect]
     Active Substance: ADALIMUMAB
     Indication: CROHN^S DISEASE
     Route: 058
     Dates: start: 201401, end: 201407
  2. HUMIRA [Suspect]
     Active Substance: ADALIMUMAB
     Route: 058
     Dates: start: 20141110, end: 20141110

REACTIONS (8)
  - Cardiac disorder [Unknown]
  - Dyspnoea [Unknown]
  - Crohn^s disease [Not Recovered/Not Resolved]
  - Adverse drug reaction [Unknown]
  - Pain [Unknown]
  - Butterfly rash [Unknown]
  - Weight increased [Unknown]
  - Crohn^s disease [Recovered/Resolved]

NARRATIVE: CASE EVENT DATE: 2014
